FAERS Safety Report 14474923 (Version 1)
Quarter: 2018Q1

REPORT INFORMATION
  Report Type: Spontaneous
  Country: US (occurrence: US)
  Receive Date: 20180201
  Receipt Date: 20180201
  Transmission Date: 20180509
  Serious: Yes (Hospitalization)
  Sender: FDA-Public Use
  Company Number: US-PFIZER INC-2018040487

PATIENT
  Age: 64 Year
  Sex: Female
  Weight: 77.11 kg

DRUGS (3)
  1. PRIMIDONE. [Suspect]
     Active Substance: PRIMIDONE
     Indication: ESSENTIAL TREMOR
     Dosage: UNK
  2. LYRICA [Suspect]
     Active Substance: PREGABALIN
     Indication: FIBROMYALGIA
     Dosage: 75 MG, 2X/DAY
     Route: 048
  3. PRIMIDONE. [Suspect]
     Active Substance: PRIMIDONE
     Indication: SEIZURE

REACTIONS (1)
  - Seizure [Recovered/Resolved]

NARRATIVE: CASE EVENT DATE: 201609
